FAERS Safety Report 4390495-4 (Version None)
Quarter: 2004Q3

REPORT INFORMATION
  Report Type: 
  Country: None (occurrence: None)
  Receive Date: 20040701
  Receipt Date: 20040701
  Transmission Date: 20050211
  Serious: No
  Sender: FDA-Public Use
  Company Number: None

PATIENT
  Age: 47 Year
  Sex: Male
  Weight: 65.7716 kg

DRUGS (2)
  1. CEFUROXIME AXETIL [Suspect]
     Indication: BACTERIAL INFECTION
     Dosage: 1 ORAL
     Route: 048
     Dates: start: 20040621, end: 20040701
  2. CEFUROXIME AXETIL [Suspect]
     Indication: RHINITIS
     Dosage: 1 ORAL
     Route: 048
     Dates: start: 20040621, end: 20040701

REACTIONS (4)
  - DYSGEUSIA [None]
  - MEDICATION ERROR [None]
  - PHARMACEUTICAL PRODUCT COMPLAINT [None]
  - SENSATION OF FOREIGN BODY [None]
